FAERS Safety Report 18994838 (Version 1)
Quarter: 2021Q1

REPORT INFORMATION
  Report Type: Spontaneous
  Country: ES (occurrence: ES)
  Receive Date: 20210310
  Receipt Date: 20210310
  Transmission Date: 20210420
  Serious: Yes (Other)
  Sender: FDA-Public Use
  Company Number: ES-ENDO PHARMACEUTICALS INC-2021-001531

PATIENT

DRUGS (10)
  1. MELPHALAN HYDROCHLORIDE. [Suspect]
     Active Substance: MELPHALAN HYDROCHLORIDE
     Indication: CONGENITAL RETINOBLASTOMA
     Dosage: 30 ?G, WEEKLY
     Route: 047
  2. MELPHALAN HYDROCHLORIDE. [Suspect]
     Active Substance: MELPHALAN HYDROCHLORIDE
     Indication: CHEMOTHERAPY
  3. VINCRISTINE [Concomitant]
     Active Substance: VINCRISTINE
     Indication: CONGENITAL RETINOBLASTOMA
  4. ETOPOSIDE. [Concomitant]
     Active Substance: ETOPOSIDE
     Indication: CONGENITAL RETINOBLASTOMA
  5. TOPOTECAN [Concomitant]
     Active Substance: TOPOTECAN HYDROCHLORIDE
     Indication: CONGENITAL RETINOBLASTOMA
  6. CARBOPLATIN. [Concomitant]
     Active Substance: CARBOPLATIN
     Indication: CONGENITAL RETINOBLASTOMA
  7. TOPOTECAN [Concomitant]
     Active Substance: TOPOTECAN HYDROCHLORIDE
     Indication: CHEMOTHERAPY
  8. VINCRISTINE [Concomitant]
     Active Substance: VINCRISTINE
     Indication: CHEMOTHERAPY MULTIPLE AGENTS SYSTEMIC
  9. ETOPOSIDE. [Concomitant]
     Active Substance: ETOPOSIDE
     Indication: CHEMOTHERAPY MULTIPLE AGENTS SYSTEMIC
  10. CARBOPLATIN. [Concomitant]
     Active Substance: CARBOPLATIN
     Indication: CHEMOTHERAPY MULTIPLE AGENTS SYSTEMIC

REACTIONS (2)
  - Off label use [Recovered/Resolved]
  - Retinal scar [Unknown]
